FAERS Safety Report 9110598 (Version 1)
Quarter: 2013Q1

REPORT INFORMATION
  Report Type: Spontaneous
  Country: US (occurrence: US)
  Receive Date: 20130219
  Receipt Date: 20130219
  Transmission Date: 20140127
  Serious: No
  Sender: FDA-Public Use
  Company Number: US-BRISTOL-MYERS SQUIBB COMPANY-16615528

PATIENT
  Age: 62 Year
  Sex: Male
  Weight: 78 kg

DRUGS (2)
  1. OHRENCIA [Suspect]
     Indication: RHEUMATOID ARTHRITIS
     Dosage: STARTED 2 MONTHS AGO.
     Route: 042
  2. PREDNISONE [Concomitant]

REACTIONS (1)
  - Lymphadenopathy [Recovering/Resolving]
